FAERS Safety Report 19891249 (Version 1)
Quarter: 2021Q3

REPORT INFORMATION
  Report Type: Spontaneous
  Country: US (occurrence: US)
  Receive Date: 20210928
  Receipt Date: 20210928
  Transmission Date: 20211014
  Serious: No
  Sender: FDA-Public Use
  Company Number: US-JNJFOC-20210938337

PATIENT
  Age: 59 Year
  Sex: Female

DRUGS (4)
  1. COVID?19 VACCINE [Concomitant]
     Indication: IMMUNISATION
     Route: 065
  2. FLUOROMETHOLONE. [Concomitant]
     Active Substance: FLUOROMETHOLONE
     Indication: DRY EYE
     Route: 047
  3. MOTRIN [Suspect]
     Active Substance: IBUPROFEN
     Indication: FATIGUE
     Route: 065
  4. RESTASIS [Concomitant]
     Active Substance: CYCLOSPORINE
     Indication: DRY EYE
     Route: 047

REACTIONS (1)
  - Product use in unapproved indication [Unknown]
